FAERS Safety Report 5468396-X (Version None)
Quarter: 2007Q3

REPORT INFORMATION
  Report Type: 
  Country: None (occurrence: None)
  Receive Date: 20070921
  Receipt Date: 20070910
  Transmission Date: 20080115
  Serious: Yes (Hospitalization)
  Sender: FDA-Public Use
  Company Number: TCI2007A01972

PATIENT
  Age: 78 Year
  Sex: Female

DRUGS (6)
  1. ACTOS [Suspect]
     Indication: DIABETES MELLITUS
     Dosage: 15 MG (15 MG, 1 IN 1D) PER ORAL
     Route: 048
     Dates: start: 20061109, end: 20070320
  2. EPINASTINE HYDROCHLORIDE [Concomitant]
  3. NILDILART (NILVADIPINE) [Concomitant]
  4. GOODMIN (BROTIZOLAM) [Concomitant]
  5. NOVORAPID (INSULIN ASPART) [Concomitant]
  6. HUMACART-N (INSULIN HUMAN) [Concomitant]

REACTIONS (13)
  - CATARACT [None]
  - COLITIS [None]
  - COLITIS ULCERATIVE [None]
  - DIARRHOEA [None]
  - ERYTHEMA [None]
  - FAECES DISCOLOURED [None]
  - GASTROINTESTINAL DISORDER [None]
  - GASTROINTESTINAL EROSION [None]
  - GLYCOSYLATED HAEMOGLOBIN INCREASED [None]
  - HYPOGLYCAEMIA [None]
  - MELAENA [None]
  - PYREXIA [None]
  - VOMITING [None]
